FAERS Safety Report 10005388 (Version 3)
Quarter: 2014Q1

REPORT INFORMATION
  Report Type: Spontaneous
  Country: US (occurrence: US)
  Receive Date: 20140313
  Receipt Date: 20140324
  Transmission Date: 20141002
  Serious: No
  Sender: FDA-Public Use
  Company Number: US-BIOGENIDEC-2012BI042996

PATIENT
  Sex: Female

DRUGS (5)
  1. AVONEX [Suspect]
     Indication: MULTIPLE SCLEROSIS
     Route: 030
     Dates: start: 20020601, end: 20060802
  2. AVONEX [Suspect]
     Indication: MULTIPLE SCLEROSIS
     Route: 030
     Dates: start: 20060918, end: 20070320
  3. AVONEX [Suspect]
     Indication: MULTIPLE SCLEROSIS
     Route: 030
     Dates: start: 20070618
  4. AVONEX [Suspect]
     Indication: MULTIPLE SCLEROSIS
     Route: 030
     Dates: start: 20110224
  5. AVONEX [Suspect]
     Indication: MULTIPLE SCLEROSIS
     Route: 030
     Dates: start: 20130126

REACTIONS (7)
  - Hepatic enzyme increased [Recovered/Resolved]
  - Scar [Not Recovered/Not Resolved]
  - Fibromyalgia [Unknown]
  - Diabetes mellitus [Not Recovered/Not Resolved]
  - Influenza [Unknown]
  - Liver function test abnormal [Recovered/Resolved]
  - Pain [Not Recovered/Not Resolved]
